FAERS Safety Report 6125204-1 (Version None)
Quarter: 2009Q1

REPORT INFORMATION
  Report Type: 
  Country: None (occurrence: None)
  Receive Date: 20090318
  Receipt Date: 20090304
  Transmission Date: 20090719
  Serious: Yes (Hospitalization)
  Sender: FDA-Public Use
  Company Number: 8043791

PATIENT
  Age: 7 Year
  Sex: Male
  Weight: 18 kg

DRUGS (4)
  1. KEPPRA [Suspect]
     Indication: EPILEPSY
     Dosage: PO
     Route: 048
     Dates: start: 20081001, end: 20081001
  2. TEGRETOL [Suspect]
     Indication: EPILEPSY
     Dosage: 200 MG 1/D PO
     Route: 048
  3. TOPAMAX [Suspect]
     Indication: EPILEPSY
     Dosage: 25 MG 2/D PO
     Route: 048
  4. RISPERDAL [Concomitant]

REACTIONS (3)
  - CONVERSION DISORDER [None]
  - CONVULSION [None]
  - MENTAL DISORDER [None]
